FAERS Safety Report 16346642 (Version 3)
Quarter: 2022Q1

REPORT INFORMATION
  Report Type: Spontaneous
  Country: US (occurrence: US)
  Receive Date: 20190523
  Receipt Date: 20220310
  Transmission Date: 20220424
  Serious: No
  Sender: FDA-Public Use
  Company Number: US-PFIZER INC-2019218406

PATIENT
  Age: 41 Year
  Sex: Male

DRUGS (1)
  1. XELJANZ XR [Suspect]
     Active Substance: TOFACITINIB CITRATE
     Indication: Rheumatoid arthritis
     Dosage: 11 MG, DAILY
     Route: 048
     Dates: start: 2015, end: 20210601

REACTIONS (5)
  - Product dose omission in error [Unknown]
  - Circumstance or information capable of leading to medication error [Unknown]
  - Joint range of motion decreased [Unknown]
  - Joint contracture [Unknown]
  - Muscular weakness [Unknown]
